FAERS Safety Report 9952238 (Version 1)
Quarter: 2014Q1

REPORT INFORMATION
  Report Type: Report from Study
  Country: PR (occurrence: PR)
  Receive Date: 20140304
  Receipt Date: 20140304
  Transmission Date: 20141002
  Serious: No
  Sender: FDA-Public Use
  Company Number: PR-ABBVIE-13P-163-1078380-00

PATIENT
  Sex: Male
  Weight: 131.66 kg

DRUGS (8)
  1. HUMIRA [Suspect]
     Indication: PSORIASIS
     Route: 058
  2. NORVASC [Concomitant]
     Indication: HYPERTENSION
     Route: 048
  3. ANTIHYPERTENSIVES [Concomitant]
     Indication: HYPERTENSION
     Dosage: AT BEDTIME
     Route: 048
  4. DIURETICS [Concomitant]
     Indication: HYPERTENSION
     Dosage: 1 TABLET DAILY
     Route: 048
  5. ATIVAN [Concomitant]
     Indication: DEPRESSION
     Route: 048
  6. ATIVAN [Concomitant]
     Indication: ANXIETY
  7. UNKNOWN PILLS [Concomitant]
     Indication: DEPRESSION
     Route: 048
  8. UNKNOWN PILLS [Concomitant]
     Indication: ANXIETY

REACTIONS (3)
  - Wrong technique in drug usage process [Recovered/Resolved]
  - Injection site haemorrhage [Recovered/Resolved]
  - Incorrect dose administered [Recovered/Resolved with Sequelae]
